FAERS Safety Report 12592452 (Version 2)
Quarter: 2016Q3

REPORT INFORMATION
  Report Type: Spontaneous
  Country: US (occurrence: US)
  Receive Date: 20160726
  Receipt Date: 20160811
  Transmission Date: 20161109
  Serious: No
  Sender: FDA-Public Use
  Company Number: US-PFIZER INC-2016358227

PATIENT

DRUGS (2)
  1. WATER BACTERIOSTATIC [Suspect]
     Active Substance: WATER
     Dosage: UNK, ( FTV 30ML)
  2. SCULPTRA [Suspect]
     Active Substance: POLYLACTIDE, L-

REACTIONS (2)
  - Dyspnoea [Recovered/Resolved]
  - Dizziness [Recovered/Resolved]
